FAERS Safety Report 7505361-2 (Version None)
Quarter: 2011Q2

REPORT INFORMATION
  Report Type: 
  Country: None (occurrence: None)
  Receive Date: 20110526
  Receipt Date: 20110513
  Transmission Date: 20111010
  Serious: Yes (Other)
  Sender: FDA-Public Use
  Company Number: US-JNJFOC-20110311326

PATIENT
  Sex: Female
  Weight: 74.84 kg

DRUGS (6)
  1. RISPERDAL CONSTA [Suspect]
     Indication: PSYCHOTIC DISORDER
     Route: 030
     Dates: start: 20070128
  2. UNKNOWN MEDICATION [Concomitant]
     Indication: TREMOR
     Route: 065
  3. RISPERDAL CONSTA [Suspect]
     Indication: SCHIZOPHRENIA, PARANOID TYPE
     Route: 030
     Dates: start: 20070128
  4. SEROQUEL [Concomitant]
     Indication: PSYCHOTIC DISORDER
     Route: 065
  5. UNKNOWN MEDICATION [Concomitant]
     Indication: ADVERSE DRUG REACTION
     Route: 065
  6. SEROQUEL [Concomitant]
     Indication: SLEEP DISORDER THERAPY
     Route: 065

REACTIONS (4)
  - PLATELET COUNT ABNORMAL [None]
  - INAPPROPRIATE SCHEDULE OF DRUG ADMINISTRATION [None]
  - OVERDOSE [None]
  - DRUG INEFFECTIVE [None]
